FAERS Safety Report 8335807-1 (Version None)
Quarter: 2012Q2

REPORT INFORMATION
  Report Type: 
  Country: None (occurrence: None)
  Receive Date: 20120504
  Receipt Date: 20090522
  Transmission Date: 20120825
  Serious: Yes (Death, Hospitalization, Other)
  Sender: FDA-Public Use
  Company Number: US-BAYER-200837297NA

PATIENT
  Sex: Female
  Weight: 47 kg

DRUGS (26)
  1. OMNISCAN [Suspect]
     Indication: ANGIOGRAM PERIPHERAL
     Dosage: 40 CC
     Dates: start: 20041210, end: 20041210
  2. OMNISCAN [Suspect]
     Dosage: UNK
     Dates: start: 20050822, end: 20050822
  3. OPTIMARK [Suspect]
     Indication: NUCLEAR MAGNETIC RESONANCE IMAGING
  4. COUMADIN [Concomitant]
     Indication: THROMBOSIS PROPHYLAXIS
     Dosage: 2 MG ALTERNATING WITH 1 MG EVERY OTHER DAY
  5. OMNISCAN [Suspect]
     Indication: IMAGING PROCEDURE
     Dosage: 33 CC
     Dates: start: 20050316, end: 20050316
  6. OMNISCAN [Suspect]
     Indication: ANGIOGRAM
     Dosage: 30 CC
     Dates: start: 20050815, end: 20050815
  7. OMNISCAN [Suspect]
     Indication: PERIPHERAL ARTERY ANGIOPLASTY
     Dosage: 25 CC
     Dates: start: 20050826, end: 20050826
  8. ATIVAN [Concomitant]
  9. MAGNEVIST [Suspect]
     Indication: NUCLEAR MAGNETIC RESONANCE IMAGING
     Dosage: UNK UNK, ONCE
     Dates: start: 20051229, end: 20051229
  10. OMNISCAN [Suspect]
     Dosage: UNK
     Dates: start: 20051128, end: 20051128
  11. PREVACID [Concomitant]
     Dosage: 60 MG DAILY
     Route: 048
  12. OMNISCAN [Suspect]
     Dosage: UNK
     Dates: start: 20051110, end: 20051110
  13. OMNISCAN [Suspect]
     Dosage: 65 CC
     Dates: start: 20050906, end: 20050906
  14. OMNISCAN [Suspect]
     Indication: MEDICAL DEVICE COMPLICATION
  15. LEVAQUIN [Concomitant]
     Dosage: 250 MG QOD
  16. RENAGEL [Concomitant]
  17. LEVOTHYROXINE SODIUM [Concomitant]
     Indication: HYPOTHYROIDISM
     Dosage: 200 MCG DAILY
     Route: 048
  18. MS CONTIN [Concomitant]
     Indication: PAIN
     Route: 048
  19. NEPHROVITE [VIT C,VIT H,B5,B12,B9,B3,B6,B2,B1 HCL] [Concomitant]
     Indication: VITAMIN SUPPLEMENTATION
  20. DARBEPOETIN ALFA [Concomitant]
     Indication: ANAEMIA
  21. PHOSLO [Concomitant]
  22. OMNISCAN [Suspect]
     Indication: NUCLEAR MAGNETIC RESONANCE IMAGING
     Dosage: 30 CC
     Dates: start: 20040405, end: 20040405
  23. OMNISCAN [Suspect]
     Indication: VENOUS PRESSURE INCREASED
     Dosage: 22.5 CC
     Dates: start: 20050525, end: 20050525
  24. OMNISCAN [Suspect]
     Dosage: UNK
     Dates: start: 20050819, end: 20050819
  25. MULTIHANCE [Suspect]
     Indication: NUCLEAR MAGNETIC RESONANCE IMAGING
  26. PROHANCE [Suspect]
     Indication: NUCLEAR MAGNETIC RESONANCE IMAGING

REACTIONS (14)
  - SCAR [None]
  - ANXIETY [None]
  - PAIN [None]
  - ANHEDONIA [None]
  - EMOTIONAL DISTRESS [None]
  - GAIT DISTURBANCE [None]
  - SKIN TIGHTNESS [None]
  - DEPRESSION [None]
  - GENERAL PHYSICAL HEALTH DETERIORATION [None]
  - ERYTHEMA [None]
  - NEPHROGENIC SYSTEMIC FIBROSIS [None]
  - FIBROSIS [None]
  - MOBILITY DECREASED [None]
  - SKIN INDURATION [None]
